FAERS Safety Report 25144884 (Version 1)
Quarter: 2025Q2

REPORT INFORMATION
  Report Type: Spontaneous
  Country: NO (occurrence: NO)
  Receive Date: 20250401
  Receipt Date: 20250401
  Transmission Date: 20250717
  Serious: Yes (Death, Other)
  Sender: STRIDES
  Company Number: NO-STRIDES ARCOLAB LIMITED-2025SP004030

PATIENT
  Sex: Female

DRUGS (2)
  1. LETROZOLE [Suspect]
     Active Substance: LETROZOLE
     Indication: Ovarian granulosa cell tumour
     Route: 065
  2. METFORMIN [Suspect]
     Active Substance: METFORMIN HYDROCHLORIDE
     Indication: Ovarian granulosa cell tumour
     Route: 065

REACTIONS (2)
  - Neoplasm progression [Fatal]
  - Drug ineffective for unapproved indication [Fatal]
